FAERS Safety Report 8773428 (Version 2)
Quarter: 2013Q2

REPORT INFORMATION
  Report Type: Report from Study
  Country: JP (occurrence: JP)
  Receive Date: 20120907
  Receipt Date: 20130417
  Transmission Date: 20140414
  Serious: Yes (Other)
  Sender: FDA-Public Use
  Company Number: JP-VERTEX PHARMACEUTICAL INC.-2012-020653

PATIENT
  Age: 50 Year
  Sex: Male

DRUGS (7)
  1. VX-950 (TELAPREVIR) [Suspect]
     Indication: CHRONIC HEPATITIS C
     Dosage: 1500 MG, QD
     Route: 048
     Dates: start: 20120524, end: 20120717
  2. RIBAVIRIN [Suspect]
     Indication: CHRONIC HEPATITIS C
     Dosage: 600 MG, QD
     Route: 048
     Dates: start: 20120524, end: 20120612
  3. RIBAVIRIN [Suspect]
     Dosage: 400 MG,QD
     Route: 048
     Dates: start: 20120613, end: 20120626
  4. RIBAVIRIN [Suspect]
     Dosage: 200 MG, QD
     Route: 048
     Dates: start: 20120627, end: 20120717
  5. PEGINTERFERON ALFA-2B [Suspect]
     Indication: CHRONIC HEPATITIS C
     Dosage: 1.5 ?G/KG, QW
     Route: 058
     Dates: start: 20120524, end: 20120711
  6. LOXONIN [Concomitant]
     Dosage: 180 MG, QD
     Route: 048
     Dates: start: 20120524, end: 20120814
  7. SELBEX [Concomitant]
     Dosage: 150 MG, QD
     Route: 048
     Dates: start: 20120524, end: 20120814

REACTIONS (1)
  - Retinopathy [Recovered/Resolved]
